FAERS Safety Report 24140026 (Version 2)
Quarter: 2024Q3

REPORT INFORMATION
  Report Type: Report from Study
  Country: GB (occurrence: GB)
  Receive Date: 20240726
  Receipt Date: 20240801
  Transmission Date: 20241017
  Serious: Yes (Other)
  Sender: LEO PHARM
  Company Number: GB-LEO Pharma-372025

PATIENT
  Age: 29 Year
  Sex: Female

DRUGS (2)
  1. ADBRY [Suspect]
     Active Substance: TRALOKINUMAB-LDRM
     Indication: Dermatitis atopic
     Dosage: 600MG (2X300MG) AT WEEK 0
     Route: 058
     Dates: start: 202405
  2. ADBRY [Suspect]
     Active Substance: TRALOKINUMAB-LDRM
     Indication: Dermatitis atopic
     Route: 058
     Dates: end: 20240711

REACTIONS (6)
  - Dizziness [Unknown]
  - Amenorrhoea [Unknown]
  - Vomiting [Unknown]
  - Acne [Unknown]
  - Injection site reaction [Unknown]
  - Headache [Unknown]

NARRATIVE: CASE EVENT DATE: 20240501
